FAERS Safety Report 6589660-7 (Version None)
Quarter: 2010Q1

REPORT INFORMATION
  Report Type: 
  Country: None (occurrence: None)
  Receive Date: 20100219
  Receipt Date: 20100205
  Transmission Date: 20100710
  Serious: Yes (Other)
  Sender: FDA-Public Use
  Company Number: AU-RANBAXY-2010RR-31071

PATIENT
  Age: 46 Year
  Sex: Female

DRUGS (3)
  1. FLECAINIDE ACETATE [Suspect]
     Dosage: 100 MG, BID
  2. ASPIRIN [Concomitant]
     Indication: ATRIAL FIBRILLATION
     Dosage: 100 MG, UNK
  3. ASPIRIN [Concomitant]
     Indication: SYNCOPE

REACTIONS (1)
  - STRESS CARDIOMYOPATHY [None]
